FAERS Safety Report 17209096 (Version 1)
Quarter: 2019Q4

REPORT INFORMATION
  Report Type: Spontaneous
  Country: FR (occurrence: FR)
  Receive Date: 20191227
  Receipt Date: 20191227
  Transmission Date: 20200122
  Serious: Yes (Life-Threatening)
  Sender: FDA-Public Use
  Company Number: FR-MYLANLABS-2019M1128185

PATIENT
  Age: 31 Year
  Sex: Female
  Weight: 67.5 kg

DRUGS (3)
  1. MIDAZOLAM [Suspect]
     Active Substance: MIDAZOLAM HYDROCHLORIDE
     Indication: SEIZURE
     Dosage: 1 MILLIGRAM, QD
     Route: 042
     Dates: start: 20190825, end: 20190825
  2. THIOPENTAL WITH SODIUM CARBONATE [Suspect]
     Active Substance: SODIUM CARBONATE\THIOPENTAL
     Indication: INDUCTION OF ANAESTHESIA
     Dosage: 400 MILLIGRAM, TOTAL
     Route: 042
     Dates: start: 20190825, end: 20190825
  3. RIVOTRIL [Suspect]
     Active Substance: CLONAZEPAM
     Indication: SEIZURE
     Dosage: 2 MILLIGRAM, QD
     Route: 042
     Dates: start: 20190825, end: 20190825

REACTIONS (1)
  - Anaphylactic shock [Recovered/Resolved]

NARRATIVE: CASE EVENT DATE: 20190825
